FAERS Safety Report 9299339 (Version 1)
Quarter: 2013Q2

REPORT INFORMATION
  Report Type: Spontaneous
  Country: HN (occurrence: HN)
  Receive Date: 20130520
  Receipt Date: 20130520
  Transmission Date: 20140414
  Serious: Yes (Hospitalization)
  Sender: FDA-Public Use
  Company Number: HN-PFIZER INC-2013149789

PATIENT
  Age: 30 Year
  Sex: 0

DRUGS (4)
  1. TYGACIL [Suspect]
     Indication: RENAL LYMPHOCELE
     Dosage: 50 MG, 2X/DAY
     Dates: start: 201304, end: 2013
  2. CELLCEPT [Interacting]
     Indication: RENAL TRANSPLANT
     Dosage: UNK
     Dates: start: 201304
  3. IMIPENEM [Concomitant]
     Indication: RENAL LYMPHOCELE
     Dosage: UNK
     Dates: start: 201304, end: 201304
  4. ERTAPENEM [Concomitant]
     Indication: RENAL LYMPHOCELE
     Dosage: UNK
     Dates: start: 201304, end: 201304

REACTIONS (2)
  - Haemoglobin decreased [Recovering/Resolving]
  - Drug interaction [Recovering/Resolving]
